FAERS Safety Report 13449474 (Version 1)
Quarter: 2017Q2

REPORT INFORMATION
  Report Type: Report from Study
  Country: US (occurrence: BR)
  Receive Date: 20170417
  Receipt Date: 20170417
  Transmission Date: 20170830
  Serious: Yes (Death)
  Sender: FDA-Public Use
  Company Number: US-SUNOVION-2017SUN001566

PATIENT
  Sex: Male
  Weight: 40 kg

DRUGS (5)
  1. PIRFENIDONE [Concomitant]
     Active Substance: PIRFENIDONE
     Dosage: UNKNOWN
     Route: 065
  2. INDACATEROL AND GLYCOPYRROLATE [Suspect]
     Active Substance: GLYCOPYRROLATE\INDACATEROL MALEATE
     Indication: IDIOPATHIC PULMONARY FIBROSIS
     Dosage: 1 DF, QD (GLYGOPYRRALATE 50 UG/INDCATEROL 110UG)
     Route: 055
     Dates: start: 201612
  3. INDACATEROL AND GLYCOPYRROLATE [Suspect]
     Active Substance: GLYCOPYRROLATE\INDACATEROL MALEATE
     Indication: CHRONIC OBSTRUCTIVE PULMONARY DISEASE
  4. GLYCOPYRROLATE. [Suspect]
     Active Substance: GLYCOPYRROLATE
     Indication: IDIOPATHIC PULMONARY FIBROSIS
     Dosage: 50 OT, UNK
     Route: 065
     Dates: start: 201606
  5. LORAZEPAM. [Concomitant]
     Active Substance: LORAZEPAM
     Dosage: UNKNOWN
     Route: 065

REACTIONS (13)
  - Respiratory depression [Fatal]
  - Muscle atrophy [Unknown]
  - Secretion discharge [Recovering/Resolving]
  - Speech disorder [Unknown]
  - Dyspnoea [Unknown]
  - Respiratory disorder [Unknown]
  - Death [Fatal]
  - Weight decreased [Unknown]
  - Somnolence [Unknown]
  - Insomnia [Unknown]
  - Off label use [Unknown]
  - Body height decreased [Unknown]
  - Cough [Recovering/Resolving]
